FAERS Safety Report 6446176-6 (Version None)
Quarter: 2009Q4

REPORT INFORMATION
  Report Type: 
  Country: None (occurrence: None)
  Receive Date: 20091119
  Receipt Date: 20091019
  Transmission Date: 20100525
  Serious: No
  Sender: FDA-Public Use
  Company Number: US-BAYER-200936890NA

PATIENT

DRUGS (1)
  1. ADALAT CC [Suspect]
     Indication: ANAL FISSURE

REACTIONS (1)
  - NO ADVERSE EVENT [None]
